FAERS Safety Report 8418854-0 (Version None)
Quarter: 2012Q2

REPORT INFORMATION
  Report Type: 
  Country: None (occurrence: None)
  Receive Date: 20120531
  Receipt Date: 20120515
  Transmission Date: 20120825
  Serious: Yes (Hospitalization)
  Sender: FDA-Public Use
  Company Number: CIO12008530

PATIENT
  Sex: Female

DRUGS (1)
  1. VAPORUB, REGULAR SCENT (CAMPHOR 143.07 MG CEDAR LEAF OIL 20.4 MG, EUCA [Suspect]
     Indication: MULTIPLE ALLERGIES
     Dosage: ; DAILY; INTRANASAL
     Route: 045

REACTIONS (4)
  - INCORRECT ROUTE OF DRUG ADMINISTRATION [None]
  - INTENTIONAL DRUG MISUSE [None]
  - ABNORMAL BEHAVIOUR [None]
  - FAECES DISCOLOURED [None]
